FAERS Safety Report 25032066 (Version 2)
Quarter: 2025Q1

REPORT INFORMATION
  Report Type: Spontaneous
  Country: JP (occurrence: JP)
  Receive Date: 20250303
  Receipt Date: 20250307
  Transmission Date: 20250409
  Serious: No
  Sender: TAKEDA
  Company Number: JP-TAKEDA-2025TUS021797

PATIENT
  Age: 2 Decade
  Sex: Female

DRUGS (1)
  1. MIDODRINE HYDROCHLORIDE [Suspect]
     Active Substance: MIDODRINE HYDROCHLORIDE
     Indication: Product used for unknown indication

REACTIONS (1)
  - Overdose [Unknown]

NARRATIVE: CASE EVENT DATE: 20250219
